FAERS Safety Report 21440696 (Version 3)
Quarter: 2023Q2

REPORT INFORMATION
  Report Type: Spontaneous
  Country: FR (occurrence: FR)
  Receive Date: 20221011
  Receipt Date: 20230517
  Transmission Date: 20230722
  Serious: Yes (Hospitalization, Other)
  Sender: FDA-Public Use
  Company Number: None

PATIENT
  Age: 70 Year
  Sex: Male
  Weight: 64 kg

DRUGS (18)
  1. XALKORI [Suspect]
     Active Substance: CRIZOTINIB
     Indication: Lung carcinoma cell type unspecified stage IV
     Dosage: 500 MG, 1X/DAY
     Route: 048
     Dates: start: 20220907, end: 20220924
  2. EZETIMIBE [Concomitant]
     Active Substance: EZETIMIBE
     Dosage: 10 MG, 1X/DAY IN THE EVENING
  3. EPLERENONE [Concomitant]
     Active Substance: EPLERENONE
     Dosage: 25 MG, 1X/DAY AT  MIDDAY
  4. REPAGLINIDE [Concomitant]
     Active Substance: REPAGLINIDE
     Dosage: 0.5 MG, 3X/DAY
  5. LEVOTHYROXINE [Concomitant]
     Active Substance: LEVOTHYROXINE
     Dosage: 50 UG, 1X/DAY IN THE MORNING
  6. ATORVASTATIN [Concomitant]
     Active Substance: ATORVASTATIN
     Dosage: 80 MG, 1X/DAY IN THE EVENING
  7. CORGARD [Concomitant]
     Active Substance: NADOLOL
     Dosage: 40 MG, 2X/DAY (IN THE MORNING AND THE EVENING)
  8. FEBUXOSTAT [Concomitant]
     Active Substance: FEBUXOSTAT
     Dosage: 80 MG, 1X/DAY IN THE MORNING
  9. ENTRESTO [Concomitant]
     Active Substance: SACUBITRIL\VALSARTAN
     Dosage: [SACUBITRIL 97 MG]/[ VALSARTAN 103 MG], 2X/DAY IN THE MORNING AND THE EVENING
  10. DOLIPRANE [Concomitant]
     Active Substance: ACETAMINOPHEN
     Indication: Pain
     Dosage: 500 MG AS NEEDED FOR PAIN OR FEVER (UP TO 3 G/DAY)
  11. DOLIPRANE [Concomitant]
     Active Substance: ACETAMINOPHEN
     Indication: Pyrexia
  12. AMIODARONE [Concomitant]
     Active Substance: AMIODARONE
     Dosage: 200 MG, 1X/DAY IN THE MORNING
  13. ZOPICLONE [Concomitant]
     Active Substance: ZOPICLONE
     Dosage: 7.5 MG, 1X/DAY IN THE EVENING
  14. LANSOPRAZOLE [Concomitant]
     Active Substance: LANSOPRAZOLE
     Dosage: 30 MG, 2X/DAY  IN THE MORNING AND THE EVENING
  15. ALBUTEROL [Concomitant]
     Active Substance: ALBUTEROL
     Dosage: 5 MG/2.5 ML, 3X/DAY
  16. FENOFIBRATE [Concomitant]
     Active Substance: FENOFIBRATE
     Dosage: 67 MG, 1X/DAY IN THE EVENING
  17. FOLIC ACID [Concomitant]
     Active Substance: FOLIC ACID
     Dosage: 5 MG, 1X/DAY IN THE MORNING
  18. KARDEGIC [Concomitant]
     Active Substance: ASPIRIN DL-LYSINE
     Dosage: 75 MG, 1X/DAY AT MIDDAY

REACTIONS (6)
  - Diarrhoea [Recovered/Resolved]
  - Weight loss poor [Recovering/Resolving]
  - Fall [Recovering/Resolving]
  - Dehydration [Recovering/Resolving]
  - Blood pressure decreased [Recovered/Resolved]
  - Fatigue [Recovering/Resolving]

NARRATIVE: CASE EVENT DATE: 20220919
